FAERS Safety Report 5764964-6 (Version None)
Quarter: 2008Q2

REPORT INFORMATION
  Report Type: 
  Country: None (occurrence: None)
  Receive Date: 20080611
  Receipt Date: 20080530
  Transmission Date: 20081010
  Serious: Yes (Other)
  Sender: FDA-Public Use
  Company Number: B0524166A

PATIENT

DRUGS (1)
  1. AUGMENTIN '125' [Suspect]
     Indication: ESCHAR
     Route: 058
     Dates: start: 20080101

REACTIONS (4)
  - INCORRECT ROUTE OF DRUG ADMINISTRATION [None]
  - OFF LABEL USE [None]
  - SKIN IRRITATION [None]
  - SKIN NECROSIS [None]
